FAERS Safety Report 7463184-7 (Version None)
Quarter: 2011Q2

REPORT INFORMATION
  Report Type: 
  Country: None (occurrence: None)
  Receive Date: 20110506
  Receipt Date: 20110427
  Transmission Date: 20111010
  Serious: Yes (Other)
  Sender: FDA-Public Use
  Company Number: US-ROCHE-749894

PATIENT
  Sex: Female
  Weight: 49.9 kg

DRUGS (2)
  1. ACCUTANE [Suspect]
     Route: 048
     Dates: start: 20070901, end: 20080401
  2. ACCUTANE [Suspect]
     Indication: ACNE
     Dosage: DOSE: 40 MG QD, 60 MG, 80 MG QD
     Route: 048
     Dates: start: 20051001, end: 20060401

REACTIONS (10)
  - BLOOD CHOLESTEROL INCREASED [None]
  - DRY SKIN [None]
  - EPISTAXIS [None]
  - GASTROINTESTINAL INJURY [None]
  - INFLAMMATORY BOWEL DISEASE [None]
  - VARICOSE VEIN [None]
  - IRRITABLE BOWEL SYNDROME [None]
  - PROCTITIS ULCERATIVE [None]
  - LIP DRY [None]
  - COLITIS ULCERATIVE [None]
